FAERS Safety Report 6369495-0 (Version None)
Quarter: 2009Q3

REPORT INFORMATION
  Report Type: 
  Country: None (occurrence: None)
  Receive Date: 20090923
  Receipt Date: 20090910
  Transmission Date: 20100115
  Serious: Yes (Other)
  Sender: FDA-Public Use
  Company Number: CA-RANBAXY-2009RR-28066

PATIENT
  Age: 52 Year
  Sex: Male

DRUGS (17)
  1. ZIDOVUDINE [Suspect]
     Indication: HIV INFECTION
  2. LAMIVUDINE [Suspect]
     Indication: HIV INFECTION
  3. STAVUDINE [Suspect]
     Indication: HIV INFECTION
  4. DIDANOSINE [Suspect]
     Indication: HIV INFECTION
  5. INDINIVIR SULFATE [Suspect]
     Indication: HIV INFECTION
  6. LOPINAVIR [Suspect]
     Indication: HIV INFECTION
  7. ABACAVIR SULFATE [Suspect]
     Indication: HIV INFECTION
  8. DELAVIRDINE [Suspect]
     Indication: HIV INFECTION
  9. SAQUINAVIR [Suspect]
     Indication: HIV INFECTION
  10. NEVIRAPINE [Suspect]
     Indication: HIV INFECTION
  11. EFAVIRENZ [Suspect]
     Indication: HIV INFECTION
  12. NELFINAVIR [Suspect]
     Indication: HIV INFECTION
  13. RITONAVIR [Suspect]
     Indication: HIV INFECTION
  14. TENOFOVIR DISOPROXIL FUMARATE [Suspect]
     Indication: HIV INFECTION
  15. DARUNAVIR [Suspect]
     Indication: HIV INFECTION
  16. ETRAVIRINE [Suspect]
     Indication: HIV INFECTION
  17. RALTEGRAVIR [Suspect]
     Indication: HIV INFECTION

REACTIONS (2)
  - MITOCHONDRIAL TOXICITY [None]
  - OPHTHALMOPLEGIA [None]
